FAERS Safety Report 12535304 (Version 2)
Quarter: 2016Q3

REPORT INFORMATION
  Report Type: Spontaneous
  Country: US (occurrence: US)
  Receive Date: 20160707
  Receipt Date: 20160719
  Transmission Date: 20161109
  Serious: Yes (Hospitalization, Other)
  Sender: FDA-Public Use
  Company Number: US-SUN PHARMACEUTICAL INDUSTRIES LTD-2016US-119725

PATIENT
  Age: 7 Month
  Sex: Female
  Weight: 6.1 kg

DRUGS (2)
  1. AMOXICILLIN 600MG, POTASSIUM CLAVULANATE 42.9MG/5 ML [Concomitant]
     Indication: OTITIS MEDIA
     Dosage: 49 MG/KG, BID
     Route: 048
  2. PROPRANOLOL [Suspect]
     Active Substance: PROPRANOLOL\PROPRANOLOL HYDROCHLORIDE
     Indication: HAEMANGIOMA
     Dosage: THREE 6MG/KG DOSES
     Route: 048

REACTIONS (10)
  - Hypotonia [Recovered/Resolved]
  - Depressed level of consciousness [Recovered/Resolved]
  - Lethargy [Recovered/Resolved]
  - Tachypnoea [Recovered/Resolved]
  - Accidental overdose [Recovered/Resolved]
  - Sinus bradycardia [Recovered/Resolved]
  - Drug administration error [Recovered/Resolved]
  - Cyanosis [Recovered/Resolved]
  - Toxicity to various agents [Recovered/Resolved]
  - Hypotension [Recovered/Resolved]
